FAERS Safety Report 10820492 (Version 1)
Quarter: 2015Q1

REPORT INFORMATION
  Report Type: Report from Study
  Country: US (occurrence: None)
  Receive Date: 20150213
  Receipt Date: 20150213
  Transmission Date: 20150721
  Serious: Yes (Other)
  Sender: FDA-Public Use
  Company Number: 2013BI087583

PATIENT
  Age: 57 Year
  Sex: Female

DRUGS (1)
  1. AVONEX [Suspect]
     Active Substance: INTERFERON BETA-1A
     Indication: MULTIPLE SCLEROSIS
     Route: 030
     Dates: start: 20000909, end: 20130801

REACTIONS (14)
  - Depression [None]
  - Mobility decreased [None]
  - Suicidal ideation [None]
  - Glaucoma [None]
  - Optic neuritis [None]
  - Eye irritation [None]
  - Retinal detachment [None]
  - Hypoaesthesia [None]
  - Arthropathy [None]
  - Vitreous floaters [None]
  - Muscle spasticity [None]
  - Retinal tear [None]
  - Demyelination [None]
  - Fatigue [None]

NARRATIVE: CASE EVENT DATE: 20130810
